FAERS Safety Report 19432447 (Version 3)
Quarter: 2021Q3

REPORT INFORMATION
  Report Type: Spontaneous
  Country: DE (occurrence: DE)
  Receive Date: 20210617
  Receipt Date: 20210707
  Transmission Date: 20211014
  Serious: No
  Sender: FDA-Public Use
  Company Number: NVSC2021DE129199

PATIENT
  Age: 79 Year
  Sex: Male

DRUGS (1)
  1. LEUPRORELIN [Suspect]
     Active Substance: LEUPROLIDE ACETATE
     Indication: PROSTATE CANCER
     Dosage: 11.25 MG, Q3MO
     Route: 065

REACTIONS (4)
  - Spinal disorder [Unknown]
  - Performance status decreased [Unknown]
  - Hot flush [Unknown]
  - Weight increased [Unknown]
